FAERS Safety Report 16864524 (Version 1)
Quarter: 2019Q3

REPORT INFORMATION
  Report Type: Spontaneous
  Country: GB (occurrence: GB)
  Receive Date: 20190928
  Receipt Date: 20190928
  Transmission Date: 20191005
  Serious: Yes (Death)
  Sender: FDA-Public Use
  Company Number: GB-ACCORD-156043

PATIENT
  Age: 29 Year
  Sex: Male

DRUGS (13)
  1. ARIPIPRAZOLE. [Concomitant]
     Active Substance: ARIPIPRAZOLE
  2. PREGABALIN. [Concomitant]
     Active Substance: PREGABALIN
  3. NAPROXEN. [Concomitant]
     Active Substance: NAPROXEN
  4. SENNA ALEXANDRINA [Concomitant]
     Active Substance: SENNA LEAF
  5. CLOZAPINE. [Suspect]
     Active Substance: CLOZAPINE
     Indication: SCHIZOPHRENIA
     Dosage: AT NIGHT
     Route: 048
     Dates: start: 201507, end: 20180917
  6. PARACETAMOL [Concomitant]
     Active Substance: ACETAMINOPHEN
  7. OMEPRAZOLE. [Concomitant]
     Active Substance: OMEPRAZOLE
  8. LACTULOSE. [Concomitant]
     Active Substance: LACTULOSE
  9. DOXYCYCLINE. [Concomitant]
     Active Substance: DOXYCYCLINE
  10. ZINERYT [Concomitant]
  11. LORAZEPAM. [Concomitant]
     Active Substance: LORAZEPAM
  12. MORPHINE [Concomitant]
     Active Substance: MORPHINE
  13. OXYBUTYNIN. [Concomitant]
     Active Substance: OXYBUTYNIN CHLORIDE

REACTIONS (1)
  - Arteriosclerosis coronary artery [Fatal]
